FAERS Safety Report 5060789-8 (Version None)
Quarter: 2006Q3

REPORT INFORMATION
  Report Type: 
  Country: None (occurrence: None)
  Receive Date: 20060719
  Receipt Date: 20060719
  Transmission Date: 20061208
  Serious: Yes (Hospitalization)
  Sender: FDA-Public Use
  Company Number: None

PATIENT
  Age: 72 Year
  Sex: Male
  Weight: 109 kg

DRUGS (2)
  1. TERAZOSIN HCL [Suspect]
     Indication: BENIGN PROSTATIC HYPERPLASIA
     Dosage: 6MG HS PO  SEVERAL YEARS
     Route: 048
  2. TERAZOSIN HCL [Suspect]
     Indication: HYPERTENSION
     Dosage: 6MG HS PO  SEVERAL YEARS
     Route: 048

REACTIONS (8)
  - ASTHENIA [None]
  - BLOOD CREATINE PHOSPHOKINASE INCREASED [None]
  - BLOOD THYROID STIMULATING HORMONE DECREASED [None]
  - DEHYDRATION [None]
  - FALL [None]
  - HYPERKALAEMIA [None]
  - MENTAL STATUS CHANGES [None]
  - ORTHOSTATIC HYPOTENSION [None]
